FAERS Safety Report 9843065 (Version 2)
Quarter: 2014Q1

REPORT INFORMATION
  Report Type: Spontaneous
  Country: US (occurrence: US)
  Receive Date: 20140124
  Receipt Date: 20140225
  Transmission Date: 20141002
  Serious: Yes (Other)
  Sender: FDA-Public Use
  Company Number: US-FRI-1000052993

PATIENT
  Age: 87 Year
  Sex: Male

DRUGS (12)
  1. LINZESS [Suspect]
     Indication: CONSTIPATION
     Dosage: 145 MCG PRN
     Route: 048
     Dates: start: 201312, end: 201312
  2. LINZESS [Suspect]
     Indication: MYELITIS TRANSVERSE
  3. LINZESS [Suspect]
     Indication: CONSTIPATION
     Dosage: 145 MCG
     Route: 048
     Dates: start: 201312, end: 20140119
  4. LINZESS [Suspect]
     Indication: MYELITIS TRANSVERSE
  5. HYDROMORPHONE [Concomitant]
  6. MILK OF MAGNESIA [Concomitant]
  7. BENICAR [Concomitant]
     Indication: HYPERTENSION
  8. LEVOTHYROXINE [Concomitant]
     Indication: HYPOTHYROIDISM
  9. SLEEPING PILLS NOS [Concomitant]
     Indication: SLEEP DISORDER
  10. TYLENOL [Concomitant]
  11. DULCOLAX [Concomitant]
  12. FISH OIL [Concomitant]

REACTIONS (5)
  - Hypertension [Recovered/Resolved]
  - Fluid retention [Recovered/Resolved]
  - Abdominal pain upper [Recovered/Resolved]
  - Intentional drug misuse [Recovered/Resolved]
  - Off label use [Recovered/Resolved]
